FAERS Safety Report 7916211-4 (Version None)
Quarter: 2011Q4

REPORT INFORMATION
  Report Type: 
  Country: None (occurrence: None)
  Receive Date: 20111116
  Receipt Date: 20111108
  Transmission Date: 20120403
  Serious: No
  Sender: FDA-Public Use
  Company Number: US-BIOGENIDEC-2011BI027885

PATIENT
  Age: 53 Year
  Sex: Male

DRUGS (2)
  1. TYSABRI [Suspect]
     Indication: MULTIPLE SCLEROSIS
     Route: 042
     Dates: start: 20100804, end: 20110926
  2. TYSABRI [Suspect]
     Route: 042
     Dates: start: 20061009, end: 20080926

REACTIONS (2)
  - CLOSTRIDIAL INFECTION [None]
  - COORDINATION ABNORMAL [None]
